FAERS Safety Report 5478475-9 (Version None)
Quarter: 2007Q4

REPORT INFORMATION
  Report Type: 
  Country: None (occurrence: None)
  Receive Date: 20071005
  Receipt Date: 20070926
  Transmission Date: 20080405
  Serious: Yes (Hospitalization)
  Sender: FDA-Public Use
  Company Number: FR-ROCHE-510074

PATIENT
  Age: 32 Year
  Sex: Male
  Weight: 63 kg

DRUGS (1)
  1. LARIAM [Suspect]
     Indication: MALARIA PROPHYLAXIS
     Dosage: TOTAL OF THREE TABLETS. SECOND TABLET TAKEN IN CHRISTMAS 2004.
     Route: 048
     Dates: start: 20041201

REACTIONS (13)
  - DEPRESSION [None]
  - DISORIENTATION [None]
  - GASTROINTESTINAL DISORDER [None]
  - HEADACHE [None]
  - HYPERHIDROSIS [None]
  - HYPERTENSION [None]
  - NAUSEA [None]
  - PANIC ATTACK [None]
  - PARAESTHESIA [None]
  - SOCIAL PHOBIA [None]
  - TACHYCARDIA [None]
  - TINNITUS [None]
  - VOMITING [None]
